FAERS Safety Report 9106014 (Version 1)
Quarter: 2013Q1

REPORT INFORMATION
  Report Type: Spontaneous
  Country: CH (occurrence: CH)
  Receive Date: 20130220
  Receipt Date: 20130220
  Transmission Date: 20140127
  Serious: Yes (Hospitalization)
  Sender: FDA-Public Use
  Company Number: CH-PFIZER INC-2013062249

PATIENT
  Sex: Female

DRUGS (4)
  1. LYRICA [Suspect]
     Indication: TOOTHACHE
     Dosage: 300 MG, 1X/DAY
  2. ZALDIAR [Suspect]
     Dosage: 2 TABLETS IN THE EVENING
  3. STILNOX [Concomitant]
  4. DORMICUM TABLET ^ROCHE^ [Concomitant]

REACTIONS (6)
  - Muscular weakness [Unknown]
  - Circulatory collapse [Unknown]
  - Confusional state [Unknown]
  - Loss of consciousness [Unknown]
  - Creatinine renal clearance abnormal [Unknown]
  - Off label use [Unknown]
